FAERS Safety Report 5765399-2 (Version None)
Quarter: 2008Q2

REPORT INFORMATION
  Report Type: 
  Country: None (occurrence: None)
  Receive Date: 20080611
  Receipt Date: 20080603
  Transmission Date: 20081010
  Serious: Yes (Other)
  Sender: FDA-Public Use
  Company Number: BR-WYE-H04385308

PATIENT
  Sex: Male
  Weight: 73 kg

DRUGS (1)
  1. EFFEXOR XR [Suspect]
     Indication: DEPRESSION
     Route: 048
     Dates: start: 20080215, end: 20080301

REACTIONS (3)
  - AGGRESSION [None]
  - INSOMNIA [None]
  - NERVOUSNESS [None]
